FAERS Safety Report 7603042-8 (Version None)
Quarter: 2011Q3

REPORT INFORMATION
  Report Type: 
  Country: None (occurrence: None)
  Receive Date: 20110712
  Receipt Date: 20110712
  Transmission Date: 20111222
  Serious: Yes (Life-Threatening, Hospitalization, Other)
  Sender: FDA-Public Use
  Company Number: None

PATIENT
  Age: 69 Year
  Sex: Male
  Weight: 91.3 kg

DRUGS (3)
  1. MILRINONE LACTATE [Suspect]
     Indication: INCREASED VENTRICULAR AFTERLOAD
     Dosage: 4.7MG -50MCG/KG-
     Route: 040
     Dates: start: 20110710, end: 20110710
  2. MILRINONE LACTATE [Suspect]
     Indication: CARDIAC ARREST
     Dosage: 4.7MG -50MCG/KG-
     Route: 040
     Dates: start: 20110710, end: 20110710
  3. MILRINONE LACTATE [Suspect]
     Indication: NEGATIVE CARDIAC INOTROPIC EFFECT
     Dosage: 4.7MG -50MCG/KG-
     Route: 040
     Dates: start: 20110710, end: 20110710

REACTIONS (3)
  - VENTRICULAR TACHYCARDIA [None]
  - SUPRAVENTRICULAR EXTRASYSTOLES [None]
  - VENTRICULAR EXTRASYSTOLES [None]
